FAERS Safety Report 5669792-8 (Version None)
Quarter: 2008Q1

REPORT INFORMATION
  Report Type: 
  Country: None (occurrence: None)
  Receive Date: 20080317
  Receipt Date: 20080306
  Transmission Date: 20080703
  Serious: Yes (Other)
  Sender: FDA-Public Use
  Company Number: JP-SANOFI-SYNTHELABO-A01200802876

PATIENT
  Sex: Male

DRUGS (4)
  1. FLUOROURACIL [Suspect]
     Dosage: 500 MG/BODY IV BOLUS FOLLOWED BY 800 MG CONTINUOUS INFUSION ON D1+2
     Dates: start: 20080121, end: 20080122
  2. BEVACIZUMAB [Suspect]
     Route: 042
     Dates: start: 20080121, end: 20080121
  3. ISOVORIN [Concomitant]
     Route: 042
     Dates: start: 20080121, end: 20080122
  4. ELPLAT [Suspect]
     Indication: COLON CANCER
     Route: 042
     Dates: start: 20080121, end: 20080121

REACTIONS (2)
  - PERIPHERAL NERVE PALSY [None]
  - SKIN DISORDER [None]
